FAERS Safety Report 5271362-0 (Version None)
Quarter: 2007Q1

REPORT INFORMATION
  Report Type: 
  Country: None (occurrence: None)
  Receive Date: 20070321
  Receipt Date: 20070315
  Transmission Date: 20070707
  Serious: Yes (Other)
  Sender: FDA-Public Use
  Company Number: AR-BRISTOL-MYERS SQUIBB COMPANY-13717889

PATIENT
  Age: 45 Year
  Sex: Male

DRUGS (4)
  1. REYATAZ [Suspect]
  2. RITONAVIR [Suspect]
  3. SAQUINAVIR [Suspect]
  4. ZIDOVUDINE [Suspect]

REACTIONS (1)
  - HEPATOTOXICITY [None]
